FAERS Safety Report 20990191 (Version 1)
Quarter: 2022Q2

REPORT INFORMATION
  Report Type: Report from Study
  Country: DE (occurrence: DE)
  Receive Date: 20220621
  Receipt Date: 20220621
  Transmission Date: 20220721
  Serious: Yes (Other)
  Sender: FDA-Public Use
  Company Number: DE-SUN PHARMACEUTICAL INDUSTRIES LTD-2022RR-341606

PATIENT
  Age: 8 Year
  Sex: Male

DRUGS (2)
  1. ANASTROZOLE [Suspect]
     Active Substance: ANASTROZOLE
     Indication: Gynaecomastia
     Dosage: 1 MILLIGRAM/KILOGRAM, DAILY
     Route: 065
  2. TESTOLACTONE [Concomitant]
     Active Substance: TESTOLACTONE
     Indication: Gynaecomastia
     Dosage: 5 MILLIGRAM/KILOGRAM, DAILY
     Route: 065

REACTIONS (1)
  - Disease recurrence [Unknown]
